FAERS Safety Report 7592254-8 (Version None)
Quarter: 2011Q3

REPORT INFORMATION
  Report Type: 
  Country: None (occurrence: None)
  Receive Date: 20110706
  Receipt Date: 20110519
  Transmission Date: 20111222
  Serious: Yes (Death, Other)
  Sender: FDA-Public Use
  Company Number: ES-CELGENEUS-144-21880-10070658

PATIENT

DRUGS (4)
  1. REVLIMID [Suspect]
     Indication: MULTIPLE MYELOMA
     Dosage: 25 MILLIGRAM
     Route: 048
  2. DEXAMETHASONE [Suspect]
     Indication: MULTIPLE MYELOMA
     Dosage: 20 MILLIGRAM
     Route: 065
  3. REVLIMID [Suspect]
     Dosage: 10 MILLIGRAM
     Route: 048
  4. REVLIMID [Suspect]
     Dosage: 15 MILLIGRAM
     Route: 048

REACTIONS (12)
  - GASTROINTESTINAL HAEMORRHAGE [None]
  - ASTHENIA [None]
  - INFECTION [None]
  - ANAEMIA [None]
  - DIARRHOEA [None]
  - DELIRIUM [None]
  - GLAUCOMA [None]
  - DEEP VEIN THROMBOSIS [None]
  - DRUG INTOLERANCE [None]
  - RASH [None]
  - DEATH [None]
  - MULTIPLE MYELOMA [None]
